FAERS Safety Report 8290092-4 (Version None)
Quarter: 2012Q2

REPORT INFORMATION
  Report Type: 
  Country: None (occurrence: None)
  Receive Date: 20120417
  Receipt Date: 20120411
  Transmission Date: 20120825
  Serious: Yes (Hospitalization)
  Sender: FDA-Public Use
  Company Number: IT-PFIZER INC-2012091166

PATIENT
  Age: 47 Year
  Sex: Male

DRUGS (2)
  1. EPREX [Concomitant]
  2. TORISEL [Suspect]
     Indication: RENAL NEOPLASM
     Dosage: UNK
     Dates: start: 20120113, end: 20120330

REACTIONS (2)
  - PHARYNGEAL OEDEMA [None]
  - FACE OEDEMA [None]
